FAERS Safety Report 4490521-8 (Version None)
Quarter: 2004Q4

REPORT INFORMATION
  Report Type: 
  Country: None (occurrence: None)
  Receive Date: 20041102
  Receipt Date: 20041022
  Transmission Date: 20050328
  Serious: Yes (Other)
  Sender: FDA-Public Use
  Company Number: JP-BRISTOL-MYERS SQUIBB COMPANY-12747127

PATIENT
  Age: 11 Year
  Sex: Male

DRUGS (3)
  1. IFOMIDE [Suspect]
     Indication: GERM CELL CANCER
     Route: 041
     Dates: start: 20040921, end: 20040925
  2. RANDA [Suspect]
     Indication: GERM CELL CANCER
     Route: 041
     Dates: start: 20040921, end: 20040925
  3. SANDOSTATIN [Suspect]
     Indication: ABDOMINAL PAIN
     Route: 041
     Dates: start: 20040923, end: 20040927

REACTIONS (1)
  - PANCREATITIS [None]
